FAERS Safety Report 5377306-5 (Version None)
Quarter: 2007Q3

REPORT INFORMATION
  Report Type: 
  Country: None (occurrence: None)
  Receive Date: 20070703
  Receipt Date: 20070622
  Transmission Date: 20080115
  Serious: Yes (Life-Threatening, Hospitalization)
  Sender: FDA-Public Use
  Company Number: GBWYE145506OCT06

PATIENT
  Age: 21 Year
  Sex: Female

DRUGS (4)
  1. VENLAFAXIINE HCL [Suspect]
     Route: 048
  2. VENLAFAXIINE HCL [Suspect]
     Dosage: OVERDOSE WITH 28 X 37.5 MG
     Route: 048
  3. CODEINE PHOSPHATE AND ACETAMINOPHEN [Suspect]
     Dosage: UNKNOWN OVERDOSE
  4. CITALOPRAM HYDROBROMIDE [Suspect]
     Dosage: OVERDOSE WITH 40 X 40 MG

REACTIONS (13)
  - BLOOD CREATINE PHOSPHOKINASE INCREASED [None]
  - CONDITION AGGRAVATED [None]
  - ELECTROCARDIOGRAM QRS COMPLEX PROLONGED [None]
  - ELECTROCARDIOGRAM QT PROLONGED [None]
  - GRAND MAL CONVULSION [None]
  - HYPOXIA [None]
  - INTENTIONAL OVERDOSE [None]
  - INTENTIONAL SELF-INJURY [None]
  - LOSS OF CONSCIOUSNESS [None]
  - PYREXIA [None]
  - SINUS TACHYCARDIA [None]
  - SUICIDE ATTEMPT [None]
  - WHITE BLOOD CELL COUNT INCREASED [None]
